FAERS Safety Report 5120079-1 (Version None)
Quarter: 2006Q3

REPORT INFORMATION
  Report Type: 
  Country: None (occurrence: None)
  Receive Date: 20060928
  Receipt Date: 20060919
  Transmission Date: 20061208
  Serious: Yes (Other)
  Sender: FDA-Public Use
  Company Number: 2006091235

PATIENT
  Age: 65 Year
  Sex: Female
  Weight: 69 kg

DRUGS (6)
  1. CARDURA XL [Suspect]
     Indication: HYPERTENSION
     Dosage: 4 MG (4 MG, ONCE DAILY), ORAL
     Route: 048
     Dates: start: 19960101, end: 20060801
  2. EZETIMIBE (EZETIMIBE) [Concomitant]
  3. CANDESARTAN (CANDESARTAN) [Concomitant]
  4. ATORVASTATIN CALCIUM [Concomitant]
  5. LEVOTHYROXINE SODIUM [Concomitant]
  6. BENDROFLUMETHIAZIDE (BENDROFLUMETHIAZIDE) [Concomitant]

REACTIONS (8)
  - BRADYCARDIA [None]
  - DIZZINESS [None]
  - ECHOCARDIOGRAM ABNORMAL [None]
  - MUSCLE FATIGUE [None]
  - PALLOR [None]
  - PALPITATIONS [None]
  - VENTRICULAR HYPERTROPHY [None]
  - VISION BLURRED [None]
